FAERS Safety Report 6736498-3 (Version None)
Quarter: 2010Q2

REPORT INFORMATION
  Report Type: 
  Country: None (occurrence: None)
  Receive Date: 20100521
  Receipt Date: 20100518
  Transmission Date: 20101027
  Serious: Yes (Hospitalization)
  Sender: FDA-Public Use
  Company Number: FR-BRISTOL-MYERS SQUIBB COMPANY-15111057

PATIENT
  Age: 82 Year
  Sex: Male

DRUGS (12)
  1. ELISOR TABS 20 MG [Suspect]
     Indication: ARTERIOSCLEROSIS
     Dates: end: 20090201
  2. PLAVIX [Suspect]
     Indication: ARTERIOSCLEROSIS
     Route: 048
     Dates: end: 20090201
  3. PRAXILENE [Suspect]
     Indication: ARTERIOSCLEROSIS
     Route: 048
     Dates: end: 20090201
  4. KARDEGIC [Suspect]
     Indication: ARTERIOSCLEROSIS
     Route: 048
     Dates: end: 20090201
  5. CALCIPARINE [Suspect]
     Indication: HYPERTENSION
     Dosage: CALCIPARINE 7500 IU/0.3ML
     Route: 058
     Dates: start: 20090127, end: 20090201
  6. BUMEX [Suspect]
     Indication: HYPERTENSION
     Dosage: BURINEX 5 MG TABLET
     Dates: end: 20090201
  7. TAREG [Suspect]
     Indication: HYPERTENSION
     Dates: end: 20090201
  8. ROCEPHIN [Suspect]
     Indication: LUNG INFECTION
     Route: 048
     Dates: end: 20090201
  9. TAVANIC [Suspect]
     Indication: LUNG INFECTION
     Route: 048
     Dates: start: 20090119, end: 20090201
  10. ADVIL LIQUI-GELS [Suspect]
     Route: 048
     Dates: start: 20090127, end: 20090201
  11. ADANCOR [Concomitant]
     Indication: TYPE 1 DIABETES MELLITUS
     Dosage: ADANCOR 10 MG TABLET
  12. INSULATARD [Concomitant]
     Indication: TYPE 1 DIABETES MELLITUS
     Dosage: 1 DF = 20 IU IN THE MORNING AND 8 IU IN THE EVENING
     Route: 058

REACTIONS (2)
  - DISTURBANCE IN ATTENTION [None]
  - GASTROINTESTINAL HAEMORRHAGE [None]
